FAERS Safety Report 11117168 (Version 1)
Quarter: 2015Q2

REPORT INFORMATION
  Report Type: Spontaneous
  Country: US (occurrence: US)
  Receive Date: 20150515
  Receipt Date: 20150515
  Transmission Date: 20150821
  Serious: No
  Sender: FDA-Public Use
  Company Number: US-PFIZER INC-2015164728

PATIENT
  Sex: Female

DRUGS (6)
  1. LIDOCAINE HCL [Suspect]
     Active Substance: LIDOCAINE HYDROCHLORIDE
     Dosage: UNK
  2. GENTAMICIN SULFATE. [Suspect]
     Active Substance: GENTAMICIN SULFATE
     Dosage: UNK
  3. PHENOBARB [Suspect]
     Active Substance: PHENOBARBITAL SODIUM
     Dosage: UNK
  4. ZOFRAN [Suspect]
     Active Substance: ONDANSETRON HYDROCHLORIDE
     Dosage: UNK
  5. HYOSCYAMINE [Suspect]
     Active Substance: HYOSCYAMINE
     Dosage: UNK
  6. HALOPERIDOL. [Suspect]
     Active Substance: HALOPERIDOL
     Dosage: UNK

REACTIONS (1)
  - Drug hypersensitivity [Unknown]
